FAERS Safety Report 6574087-4 (Version None)
Quarter: 2010Q1

REPORT INFORMATION
  Report Type: 
  Country: None (occurrence: None)
  Receive Date: 20100208
  Receipt Date: 20100127
  Transmission Date: 20100710
  Serious: Yes (Hospitalization)
  Sender: FDA-Public Use
  Company Number: BE-ELI_LILLY_AND_COMPANY-BE201002000107

PATIENT
  Sex: Male

DRUGS (5)
  1. ZYPREXA [Suspect]
     Indication: SCHIZOPHRENIA
     Dosage: 5 MG, UNK
     Route: 048
  2. ZYPREXA [Suspect]
     Dosage: 25 MG, UNK
  3. SEROQUEL [Concomitant]
  4. TRANXENE [Concomitant]
  5. TEGRETOL [Concomitant]

REACTIONS (3)
  - ANGIOEDEMA [None]
  - LEUKOPENIA [None]
  - OVERDOSE [None]
